FAERS Safety Report 6891820-2 (Version None)
Quarter: 2010Q3

REPORT INFORMATION
  Report Type: 
  Country: None (occurrence: None)
  Receive Date: 20100731
  Receipt Date: 20071011
  Transmission Date: 20110219
  Serious: No
  Sender: FDA-Public Use
  Company Number: US-PFIZER INC-2007084277

PATIENT
  Sex: Female
  Weight: 70.31 kg

DRUGS (2)
  1. NEURONTIN [Suspect]
     Indication: INTERVERTEBRAL DISC DEGENERATION
     Dates: start: 20040101
  2. MOTRIN [Concomitant]

REACTIONS (1)
  - DRUG INEFFECTIVE [None]
